FAERS Safety Report 9316101 (Version 1)
Quarter: 2013Q2

REPORT INFORMATION
  Report Type: Spontaneous
  Country: US (occurrence: US)
  Receive Date: 20130530
  Receipt Date: 20130530
  Transmission Date: 20140414
  Serious: No
  Sender: FDA-Public Use
  Company Number: US-BIOGENIDEC-2013BI048220

PATIENT
  Age: 31 Year
  Sex: Male

DRUGS (1)
  1. TYSABRI [Suspect]
     Indication: MULTIPLE SCLEROSIS
     Route: 042
     Dates: start: 20090923

REACTIONS (5)
  - Acne [Recovered/Resolved]
  - Paraesthesia [Not Recovered/Not Resolved]
  - Dysstasia [Recovered/Resolved]
  - Nervousness [Not Recovered/Not Resolved]
  - Headache [Recovered/Resolved]
